FAERS Safety Report 8267930 (Version 4)
Quarter: 2015Q2

REPORT INFORMATION
  Report Type: Spontaneous
  Country: US (occurrence: US)
  Receive Date: 20111129
  Receipt Date: 20150423
  Transmission Date: 20150821
  Serious: Yes (Hospitalization, Other)
  Sender: FDA-Public Use
  Company Number: US-ASTRAZENECA-2011SE69574

PATIENT
  Age: 72 Year
  Sex: Female
  Weight: 63.5 kg

DRUGS (17)
  1. NEXIUM [Suspect]
     Active Substance: ESOMEPRAZOLE MAGNESIUM
     Indication: HOT FLUSH
     Route: 048
     Dates: start: 20150214
  2. BABY ASPIRIN [Concomitant]
     Active Substance: ASPIRIN
     Dosage: EVERY DAY
  3. ARTHRITIS TYLENOL GENERIC [Concomitant]
     Indication: ARTHRITIS
     Route: 048
  4. BYSTOLIC [Concomitant]
     Active Substance: NEBIVOLOL HYDROCHLORIDE
     Indication: MYOCARDIAL INFARCTION
     Route: 048
     Dates: start: 2010
  5. NEXIUM [Suspect]
     Active Substance: ESOMEPRAZOLE MAGNESIUM
     Indication: GASTROOESOPHAGEAL REFLUX DISEASE
     Route: 048
     Dates: start: 20150214
  6. FAMOTIDINE. [Concomitant]
     Active Substance: FAMOTIDINE
  7. PREMARIN [Concomitant]
     Active Substance: ESTROGENS, CONJUGATED
     Indication: HYSTERECTOMY
     Route: 048
  8. NEXIUM [Suspect]
     Active Substance: ESOMEPRAZOLE MAGNESIUM
     Indication: GASTROOESOPHAGEAL REFLUX DISEASE
     Route: 048
     Dates: start: 20150214
  9. VITAMIN D [Concomitant]
     Active Substance: CHOLECALCIFEROL
  10. AMOXICILLIN. [Concomitant]
     Active Substance: AMOXICILLIN
     Indication: INFECTION
     Route: 048
     Dates: start: 2012
  11. ARTHRITIS TYLENOL GENERIC [Concomitant]
     Indication: SURGERY
     Route: 048
  12. NEXIUM [Suspect]
     Active Substance: ESOMEPRAZOLE MAGNESIUM
     Indication: HOT FLUSH
     Route: 048
     Dates: start: 2010, end: 20150214
  13. BYSTOLIC [Concomitant]
     Active Substance: NEBIVOLOL HYDROCHLORIDE
     Indication: BLOOD PRESSURE ABNORMAL
     Route: 048
     Dates: start: 2010
  14. NEXIUM [Suspect]
     Active Substance: ESOMEPRAZOLE MAGNESIUM
     Indication: GASTROOESOPHAGEAL REFLUX DISEASE
     Route: 048
     Dates: start: 2010, end: 20150214
  15. NEXIUM [Suspect]
     Active Substance: ESOMEPRAZOLE MAGNESIUM
     Indication: GASTROOESOPHAGEAL REFLUX DISEASE
     Route: 048
     Dates: start: 2010, end: 20150214
  16. VITAMIN C [Concomitant]
     Active Substance: ASCORBIC ACID
  17. POLY IRON [Concomitant]
     Active Substance: DIETARY SUPPLEMENT

REACTIONS (11)
  - Infection [Unknown]
  - Hot flush [Unknown]
  - Off label use [Unknown]
  - Intentional product use issue [Unknown]
  - Gastrooesophageal reflux disease [Unknown]
  - Anxiety [Unknown]
  - Drug dose omission [Unknown]
  - Non-cardiac chest pain [Unknown]
  - Labile blood pressure [Unknown]
  - Product use issue [Unknown]
  - Myocardial infarction [Unknown]

NARRATIVE: CASE EVENT DATE: 2010
